FAERS Safety Report 13661134 (Version 1)
Quarter: 2017Q2

REPORT INFORMATION
  Report Type: Report from Study
  Country: US (occurrence: US)
  Receive Date: 20170616
  Receipt Date: 20170616
  Transmission Date: 20170830
  Serious: No
  Sender: FDA-Public Use
  Company Number: US-US WORLDMEDS, LLC-USW201704-000555

PATIENT
  Age: 57 Year
  Sex: Male
  Weight: 60.32 kg

DRUGS (1)
  1. APOKYN [Suspect]
     Active Substance: APOMORPHINE HYDROCHLORIDE
     Indication: PARKINSON^S DISEASE
     Route: 058

REACTIONS (2)
  - Somnolence [Recovering/Resolving]
  - Yawning [Recovering/Resolving]

NARRATIVE: CASE EVENT DATE: 20170414
